FAERS Safety Report 8845205 (Version 1)
Quarter: 2012Q4

REPORT INFORMATION
  Report Type: Spontaneous
  Country: PH (occurrence: None)
  Receive Date: 20121015
  Receipt Date: 20121015
  Transmission Date: 20130627
  Serious: Yes (Hospitalization)
  Sender: FDA-Public Use
  Company Number: DSA_60078_2012

PATIENT
  Age: 16 Year
  Sex: Male

DRUGS (13)
  1. FLUOROURACIL (FLUOROURACIL) [Suspect]
     Indication: NASOPHARYNGEAL CANCER
     Dosage: (DF)
     Dates: start: 20080916, end: 20081117
  2. CISPLATIN [Suspect]
     Indication: NASOPHARYNGEAL CANCER
     Dosage: EVERY CYCLE INTRAVENOUS (NOT OTHERWISE SPECIFIED)
     Route: 042
     Dates: start: 20080709, end: 20081021
  3. CIPROFLOXACIN [Concomitant]
  4. CO-TRIMOXAZOLE [Concomitant]
  5. METOCLOPRAMIDE [Concomitant]
  6. DEXAMETHASONE [Concomitant]
  7. GLUCOSE/SODIUM CHLORIDE [Concomitant]
  8. POTASSIUM CHLORIDE [Concomitant]
  9. CELECOXIB [Concomitant]
  10. MANNITOL [Concomitant]
  11. DIPHENHYDRAMIN [Concomitant]
  12. TRAMADOL [Concomitant]
  13. MEFENAMIC ACID [Concomitant]

REACTIONS (10)
  - Dehydration [None]
  - Decreased appetite [None]
  - Nausea [None]
  - Vomiting [None]
  - Ataxia [None]
  - Viral upper respiratory tract infection [None]
  - Nystagmus [None]
  - Nervous system disorder [None]
  - Nasopharyngeal cancer [None]
  - Malignant neoplasm progression [None]
